FAERS Safety Report 6676407-9 (Version None)
Quarter: 2010Q2

REPORT INFORMATION
  Report Type: 
  Country: None (occurrence: None)
  Receive Date: 20100412
  Receipt Date: 20100330
  Transmission Date: 20101027
  Serious: Yes (Other)
  Sender: FDA-Public Use
  Company Number: PHHY2010BR20155

PATIENT

DRUGS (5)
  1. EXELON [Suspect]
     Indication: DEMENTIA ALZHEIMER'S TYPE
     Dosage: 4.6 MG, QD
     Route: 062
  2. SEROQUEL [Concomitant]
     Dosage: 1 TABLET DAILY
     Dates: start: 20091001
  3. SEROQUEL [Concomitant]
     Dosage: 2 TABLETS DAILY
  4. SEROQUEL [Concomitant]
     Dosage: 3 TABLETS DAILY
  5. ALOIS [Concomitant]

REACTIONS (8)
  - ABNORMAL BEHAVIOUR [None]
  - AGGRESSION [None]
  - DISEASE PROGRESSION [None]
  - FAECAL INCONTINENCE [None]
  - GAIT DISTURBANCE [None]
  - MEMORY IMPAIRMENT [None]
  - MUSCULOSKELETAL STIFFNESS [None]
  - SCREAMING [None]
